FAERS Safety Report 14315657 (Version 1)
Quarter: 2017Q4

REPORT INFORMATION
  Report Type: Report from Study
  Country: US (occurrence: US)
  Receive Date: 20171221
  Receipt Date: 20171221
  Transmission Date: 20180321
  Serious: Yes (Other)
  Sender: FDA-Public Use
  Company Number: US-BAUSCH-BL-2017-034676

PATIENT
  Sex: Female

DRUGS (7)
  1. CORTISONE [Suspect]
     Active Substance: CORTISONE\HYDROCORTISONE
     Indication: PRODUCT USED FOR UNKNOWN INDICATION
     Route: 065
     Dates: start: 2017
  2. LIALDA [Suspect]
     Active Substance: MESALAMINE
     Indication: PRODUCT USED FOR UNKNOWN INDICATION
     Route: 065
     Dates: start: 2017
  3. PREDNISONE. [Suspect]
     Active Substance: PREDNISONE
     Indication: PRODUCT USED FOR UNKNOWN INDICATION
     Dosage: 20 YEARS PRIOR
     Route: 065
  4. UCERIS [Suspect]
     Active Substance: BUDESONIDE
     Indication: GASTROINTESTINAL INFECTION
     Dosage: FOR 30 DAYS
     Route: 048
     Dates: start: 2017, end: 2017
  5. UCERIS [Suspect]
     Active Substance: BUDESONIDE
     Dosage: ANOTHER 8 TABLETS UCERIS
     Route: 048
     Dates: start: 2017
  6. LIALDA [Suspect]
     Active Substance: MESALAMINE
     Dosage: TOOK FOR 20 DAYS
     Route: 065
     Dates: start: 2017
  7. PREDNISONE. [Suspect]
     Active Substance: PREDNISONE
     Route: 065
     Dates: start: 2017

REACTIONS (13)
  - Multi-organ disorder [Unknown]
  - Apparent death [Unknown]
  - Bladder disorder [Unknown]
  - Drug dose omission [Unknown]
  - Ill-defined disorder [Unknown]
  - Blood pressure abnormal [Unknown]
  - Frequent bowel movements [Recovering/Resolving]
  - Anaemia [Unknown]
  - Malaise [Unknown]
  - Off label use [Unknown]
  - Headache [Unknown]
  - Eating disorder [Recovering/Resolving]
  - Muscle spasms [Unknown]
